FAERS Safety Report 5658724-4 (Version None)
Quarter: 2008Q1

REPORT INFORMATION
  Report Type: 
  Country: None (occurrence: None)
  Receive Date: 20080310
  Receipt Date: 20070614
  Transmission Date: 20080703
  Serious: No
  Sender: FDA-Public Use
  Company Number: US-BAYER-200711099BCC

PATIENT
  Age: 73 Year
  Sex: Female
  Weight: 77 kg

DRUGS (12)
  1. ALEVE [Suspect]
     Indication: ARTHRITIS
     Dosage: TOTAL DAILY DOSE: 440 MG  UNIT DOSE: 220 MG
     Route: 048
     Dates: start: 20050101
  2. ASPIRIN [Suspect]
     Indication: ISCHAEMIC HEART DISEASE PROPHYLAXIS
     Route: 048
     Dates: start: 20070101
  3. DIOVAN [Concomitant]
  4. SYNTHROID [Concomitant]
  5. MICRO-K [Concomitant]
  6. LOZOL [Concomitant]
  7. ACIPHEX [Concomitant]
  8. OSCAL [Concomitant]
  9. CENTRUM SILVER [Concomitant]
  10. TUMS [Concomitant]
  11. PRAVACHOL [Concomitant]
     Route: 048
     Dates: start: 20070610
  12. AMBIEN [Concomitant]

REACTIONS (2)
  - DIARRHOEA [None]
  - IRRITABLE BOWEL SYNDROME [None]
